FAERS Safety Report 6557172-2 (Version None)
Quarter: 2010Q1

REPORT INFORMATION
  Report Type: 
  Country: None (occurrence: None)
  Receive Date: 20100127
  Receipt Date: 20100127
  Transmission Date: 20100710
  Serious: Yes (Hospitalization)
  Sender: FDA-Public Use
  Company Number: None

PATIENT
  Sex: Male
  Weight: 84.9 kg

DRUGS (2)
  1. CISPLATIN [Suspect]
     Dosage: 246 MG
  2. DOXORUBICIN HCL [Suspect]
     Dosage: 154 MG

REACTIONS (10)
  - ACUTE RESPIRATORY DISTRESS SYNDROME [None]
  - CULTURE POSITIVE [None]
  - DEHYDRATION [None]
  - HYPOPHAGIA [None]
  - LUNG INFILTRATION [None]
  - MUCOSAL INFLAMMATION [None]
  - NEUTROPENIA [None]
  - PYREXIA [None]
  - RESPIRATORY FAILURE [None]
  - SEPSIS [None]
